FAERS Safety Report 11733780 (Version 1)
Quarter: 2015Q4

REPORT INFORMATION
  Report Type: Spontaneous
  Country: US (occurrence: US)
  Receive Date: 20151110
  Receipt Date: 20151110
  Transmission Date: 20160304
  Serious: No
  Sender: FDA-Public Use
  Company Number: US-ELI_LILLY_AND_COMPANY-US201110006252

PATIENT
  Age: 42 Year
  Sex: Female

DRUGS (5)
  1. FORTEO [Suspect]
     Active Substance: TERIPARATIDE
     Dosage: 20 UG, QD
     Route: 065
  2. FORTEO [Suspect]
     Active Substance: TERIPARATIDE
     Indication: OSTEOPOROSIS
     Dosage: 20 UG, QD
     Dates: start: 201005
  3. FORTEO [Suspect]
     Active Substance: TERIPARATIDE
     Dosage: 20 UG, QD
     Route: 065
  4. FORTEO [Suspect]
     Active Substance: TERIPARATIDE
     Dosage: 20 UG, QD
     Route: 065
  5. FORTEO [Suspect]
     Active Substance: TERIPARATIDE
     Dosage: 20 UG, QD
     Route: 065

REACTIONS (22)
  - Abdominal pain upper [Unknown]
  - Constipation [Unknown]
  - Rash [Recovered/Resolved]
  - Abdominal discomfort [Unknown]
  - Malaise [Unknown]
  - Dementia Alzheimer^s type [Unknown]
  - Pigmentation disorder [Unknown]
  - Arthritis [Unknown]
  - Arthralgia [Unknown]
  - Arthralgia [Recovered/Resolved]
  - Haemorrhoids [Unknown]
  - Joint swelling [Unknown]
  - Joint injury [Unknown]
  - Stress fracture [Recovered/Resolved]
  - Pain in extremity [Unknown]
  - Meniscus injury [Recovered/Resolved]
  - Bone pain [Recovered/Resolved]
  - Abnormal faeces [Unknown]
  - Lacrimation increased [Not Recovered/Not Resolved]
  - Rhinorrhoea [Not Recovered/Not Resolved]
  - Myalgia [Recovered/Resolved]
  - Diarrhoea [Unknown]

NARRATIVE: CASE EVENT DATE: 201101
